FAERS Safety Report 18700982 (Version 1)
Quarter: 2021Q1

REPORT INFORMATION
  Report Type: Spontaneous
  Country: US (occurrence: US)
  Receive Date: 20210104
  Receipt Date: 20210104
  Transmission Date: 20210419
  Serious: Yes (Hospitalization, Disabling, Other)
  Sender: FDA-Public Use
  Company Number: None

PATIENT
  Age: 40 Year
  Sex: Female
  Weight: 48.6 kg

DRUGS (3)
  1. PROBIOTIC [Concomitant]
     Active Substance: PROBIOTICS NOS
  2. INJECTAFER [Suspect]
     Active Substance: FERRIC CARBOXYMALTOSE
     Indication: IRON DEFICIENCY
     Dates: start: 20200928, end: 20201005
  3. FISH OIL [Concomitant]
     Active Substance: FISH OIL

REACTIONS (6)
  - Fatigue [None]
  - Nausea [None]
  - Blood phosphorus decreased [None]
  - Alanine aminotransferase increased [None]
  - Bone pain [None]
  - Aspartate aminotransferase increased [None]

NARRATIVE: CASE EVENT DATE: 20201007
